FAERS Safety Report 25762829 (Version 1)
Quarter: 2025Q3

REPORT INFORMATION
  Report Type: Spontaneous
  Country: JP (occurrence: JP)
  Receive Date: 20250904
  Receipt Date: 20250904
  Transmission Date: 20251020
  Serious: Yes (Death, Other)
  Sender: TAKEDA
  Company Number: JP-TAKEDA-2025TJP008042

PATIENT
  Age: 74 Year
  Sex: Male
  Weight: 43.8 kg

DRUGS (14)
  1. TRINTELLIX [Suspect]
     Active Substance: VORTIOXETINE HYDROBROMIDE
     Indication: Depression
     Dosage: 5 MILLIGRAM, QD
     Dates: start: 20250523
  2. TRINTELLIX [Suspect]
     Active Substance: VORTIOXETINE HYDROBROMIDE
     Dosage: 10 MILLIGRAM, QD
     Dates: start: 20250530
  3. TRINTELLIX [Suspect]
     Active Substance: VORTIOXETINE HYDROBROMIDE
     Dosage: 20 MILLIGRAM, QD
     Dates: start: 20250606, end: 20250802
  4. MIRTAZAPINE [Concomitant]
     Active Substance: MIRTAZAPINE
  5. DAYVIGO [Concomitant]
     Active Substance: LEMBOREXANT
  6. NEUROTROPIN [Concomitant]
     Active Substance: NEUROTROPIN
  7. LIMAPROST [Concomitant]
     Active Substance: LIMAPROST
  8. HERBALS [Concomitant]
     Active Substance: HERBALS
  9. ARIPIPRAZOLE [Concomitant]
     Active Substance: ARIPIPRAZOLE
  10. AMITIZA [Concomitant]
     Active Substance: LUBIPROSTONE
  11. MAGNESIUM OXIDE [Concomitant]
     Active Substance: MAGNESIUM OXIDE
  12. SPIRONOLACTONE [Concomitant]
     Active Substance: SPIRONOLACTONE
     Dates: start: 20250702, end: 20250724
  13. FUROSEMIDE [Concomitant]
     Active Substance: FUROSEMIDE
     Dates: start: 20250702, end: 20250728
  14. Minophagen c [Concomitant]
     Dosage: UNK UNK, BID
     Dates: start: 20250723, end: 20250725

REACTIONS (5)
  - Suspected drug-induced liver injury [Fatal]
  - Septic shock [Fatal]
  - Pneumonia [Unknown]
  - Drug eruption [Unknown]
  - Off label use [Unknown]

NARRATIVE: CASE EVENT DATE: 20250725
